FAERS Safety Report 6169318-9 (Version None)
Quarter: 2009Q2

REPORT INFORMATION
  Report Type: 
  Country: None (occurrence: None)
  Receive Date: 20090424
  Receipt Date: 20090416
  Transmission Date: 20091009
  Serious: Yes (Hospitalization, Other)
  Sender: FDA-Public Use
  Company Number: 2009-00911

PATIENT
  Age: 75 Year
  Sex: Female

DRUGS (2)
  1. VELCADE [Suspect]
     Indication: MULTIPLE MYELOMA
     Dosage: 0.7 MG, 1.75 MG
     Dates: start: 20090216, end: 20090226
  2. VELCADE [Suspect]
     Indication: MULTIPLE MYELOMA
     Dosage: 0.7 MG, 1.75 MG
     Dates: start: 20090226

REACTIONS (2)
  - ATRIAL FIBRILLATION [None]
  - NEUROPATHY PERIPHERAL [None]
